FAERS Safety Report 15483201 (Version 1)
Quarter: 2018Q4

REPORT INFORMATION
  Report Type: Report from Study
  Country: ES (occurrence: ES)
  Receive Date: 20181010
  Receipt Date: 20181010
  Transmission Date: 20190205
  Serious: Yes (Hospitalization, Other)
  Sender: FDA-Public Use
  Company Number: ES-B.I. PHARMACEUTICALS,INC./RIDGEFIELD-2018-12-003330

PATIENT
  Age: 90 Year
  Sex: Female

DRUGS (4)
  1. ATROVENT [Suspect]
     Active Substance: IPRATROPIUM BROMIDE
     Indication: DYSPNOEA
     Dosage: AT HOSPITAL ER AT SINGLE DOSE (ATROVENT), ADMITTED ADMINISTERING EVERY 8 HOURS (ALDO UNION)
     Route: 055
     Dates: start: 20171122, end: 20171128
  2. METILPREDNISOLONA [Concomitant]
     Active Substance: METHYLPREDNISOLONE
     Indication: PRODUCT USED FOR UNKNOWN INDICATION
     Dosage: HOSPITAL EMERGENCY ROOM AT SINGLE DOSE
     Route: 042
     Dates: start: 20171122, end: 20171122
  3. SALBUAIR [Suspect]
     Active Substance: ALBUTEROL SULFATE
     Indication: DYSPNOEA
     Dosage: HOSPITAL EMERGENCY ROOM AT SINGLE DOSE
     Route: 055
     Dates: start: 20171122, end: 20171122
  4. FUROSEMIDA [Concomitant]
     Active Substance: FUROSEMIDE
     Indication: PRODUCT USED FOR UNKNOWN INDICATION
     Dosage: HOSPITAL EMERGENCY ROOM AT SINGLE DOSE IN TOTAL
     Route: 042
     Dates: start: 20171122, end: 20171122

REACTIONS (1)
  - Atrial fibrillation [Unknown]

NARRATIVE: CASE EVENT DATE: 20171122
